FAERS Safety Report 10003336 (Version 6)
Quarter: 2014Q4

REPORT INFORMATION
  Report Type: Spontaneous
  Country: US (occurrence: US)
  Receive Date: 20140312
  Receipt Date: 20141105
  Transmission Date: 20150528
  Serious: Yes (Death, Hospitalization, Other)
  Sender: FDA-Public Use
  Company Number: US-MERCK-1403USA005334

PATIENT
  Sex: Male
  Weight: 97.96 kg

DRUGS (2)
  1. JANUMET [Suspect]
     Active Substance: METFORMIN HYDROCHLORIDE\SITAGLIPTIN PHOSPHATE
     Indication: TYPE 2 DIABETES MELLITUS
     Dosage: 50/1000 MG
     Route: 048
     Dates: start: 201107, end: 20120808
  2. JANUVIA [Suspect]
     Active Substance: SITAGLIPTIN PHOSPHATE
     Dosage: UNK
     Route: 048
     Dates: start: 201107, end: 201207

REACTIONS (13)
  - Metastases to spine [Unknown]
  - Anxiety [Unknown]
  - Renal cyst [Unknown]
  - Metastases to thorax [Unknown]
  - Metastases to retroperitoneum [Unknown]
  - Emotional disorder [Unknown]
  - Pancreatic carcinoma metastatic [Fatal]
  - Metastases to liver [Unknown]
  - Metastases to lung [Unknown]
  - Emotional distress [Unknown]
  - Lymphadenopathy [Unknown]
  - Prostate cancer [Unknown]
  - Peripheral venous disease [Unknown]

NARRATIVE: CASE EVENT DATE: 201112
